FAERS Safety Report 5623806-X (Version None)
Quarter: 2008Q1

REPORT INFORMATION
  Report Type: 
  Country: None (occurrence: None)
  Receive Date: 20080207
  Receipt Date: 20080123
  Transmission Date: 20080703
  Serious: Yes (Hospitalization, Other)
  Sender: FDA-Public Use
  Company Number: 2007BI016061

PATIENT
  Age: 55 Year
  Sex: Female
  Weight: 70 kg

DRUGS (4)
  1. AVONEX [Suspect]
     Indication: MULTIPLE SCLEROSIS
     Dosage: 1 ; QW; IM
     Route: 030
     Dates: start: 20040801
  2. DEXTROMETHORPHAN HYDROBROMIDE [Concomitant]
  3. AMITRIPTYLINE HCL [Concomitant]
  4. ACETAMINOPHEN [Concomitant]

REACTIONS (4)
  - ARTHRALGIA [None]
  - JOINT SWELLING [None]
  - SKIN EROSION [None]
  - SYSTEMIC LUPUS ERYTHEMATOSUS [None]
